FAERS Safety Report 7187345-X (Version None)
Quarter: 2010Q4

REPORT INFORMATION
  Report Type: 
  Country: None (occurrence: None)
  Receive Date: 20101222
  Receipt Date: 20101210
  Transmission Date: 20110411
  Serious: Yes (Death)
  Sender: FDA-Public Use
  Company Number: US-ELI_LILLY_AND_COMPANY-US201012003104

PATIENT
  Age: 9 Year
  Sex: Male

DRUGS (3)
  1. PROZAC [Suspect]
  2. METHYLPHENIDATE [Concomitant]
  3. CLONIDINE [Concomitant]

REACTIONS (1)
  - CARDIAC ARREST [None]
